FAERS Safety Report 19408478 (Version 2)
Quarter: 2021Q4

REPORT INFORMATION
  Report Type: Spontaneous
  Country: GB (occurrence: GB)
  Receive Date: 20210612
  Receipt Date: 20211013
  Transmission Date: 20220303
  Serious: Yes (Hospitalization)
  Sender: FDA-Public Use
  Company Number: GB-ROCHE-1226880

PATIENT
  Age: 50 Year
  Sex: Female

DRUGS (34)
  1. PACLITAXEL [Suspect]
     Active Substance: PACLITAXEL
     Indication: Breast cancer
     Dosage: ON 12/JUN/2013, SHE RECEIVED TRASTUZUMAB PRIOR TO EVENT.ON 19/JUN/2013, THERAPY WITH TRASTUZUMAB WAS
     Route: 042
     Dates: start: 20130522
  2. PACLITAXEL [Suspect]
     Active Substance: PACLITAXEL
     Dosage: 174 MG, QW
     Route: 042
     Dates: start: 20130711
  3. TRASTUZUMAB [Suspect]
     Active Substance: TRASTUZUMAB
     Indication: Breast cancer
     Dosage: UNK
     Route: 065
     Dates: start: 20130612
  4. TRASTUZUMAB [Suspect]
     Active Substance: TRASTUZUMAB
     Dosage: 861 MG, QW
     Route: 042
     Dates: start: 20130711
  5. TRASTUZUMAB [Suspect]
     Active Substance: TRASTUZUMAB
     Dosage: LAST DOSE PRIOR TO FIRST SAE: 16/MAY/2013LOADING DOSEON 27/JUN/2013, SHE RECEIVED TRASTUZUMAB PRIOR,
     Route: 042
     Dates: start: 20130516
  6. TRASTUZUMAB [Suspect]
     Active Substance: TRASTUZUMAB
     Dosage: 714 MG, Q3W
     Route: 042
     Dates: start: 20130606
  7. DEXAMETHASONE [Concomitant]
     Active Substance: DEXAMETHASONE
     Indication: Product used for unknown indication
     Dosage: UNK
     Route: 065
     Dates: start: 20130525, end: 20130612
  8. DEXAMETHASONE [Concomitant]
     Active Substance: DEXAMETHASONE
     Dosage: UNK
     Route: 065
     Dates: start: 20130521, end: 20130524
  9. DEXAMETHASONE [Concomitant]
     Active Substance: DEXAMETHASONE
     Dosage: UNK
     Route: 065
     Dates: start: 20130520, end: 20130521
  10. DEXAMETHASONE [Concomitant]
     Active Substance: DEXAMETHASONE
     Dosage: UNK
     Route: 065
     Dates: start: 20130511, end: 20130517
  11. DEXAMETHASONE [Concomitant]
     Active Substance: DEXAMETHASONE
     Dosage: UNK
     Route: 065
     Dates: start: 20130505, end: 20130510
  12. DEXAMETHASONE [Concomitant]
     Active Substance: DEXAMETHASONE
     Dosage: 1 MILLIGRAM DAILY;
     Route: 065
     Dates: start: 20130511, end: 20130517
  13. DEXAMETHASONE [Concomitant]
     Active Substance: DEXAMETHASONE
     Dosage: 4 MILLIGRAM DAILY;
     Route: 065
     Dates: end: 20130505
  14. DICLOFENAC [Concomitant]
     Active Substance: DICLOFENAC
     Indication: Product used for unknown indication
     Dosage: 450 MILLIGRAM DAILY;
     Route: 065
     Dates: start: 201301
  15. FUROSEMIDE [Concomitant]
     Active Substance: FUROSEMIDE
     Indication: Product used for unknown indication
     Dosage: UNK
     Route: 065
     Dates: start: 20130524, end: 20130528
  16. FUROSEMIDE [Concomitant]
     Active Substance: FUROSEMIDE
     Dosage: UNK
     Route: 065
     Dates: start: 20130613, end: 20130618
  17. FUROSEMIDE [Concomitant]
     Active Substance: FUROSEMIDE
     Dosage: 40 MG, UNK
     Route: 065
     Dates: start: 20130619, end: 20130710
  18. FUROSEMIDE [Concomitant]
     Active Substance: FUROSEMIDE
     Dosage: 20 MILLIGRAM DAILY;
     Route: 065
     Dates: start: 20130516, end: 20130519
  19. GELCLAIR [Concomitant]
     Indication: Product used for unknown indication
     Dosage: UNK
     Route: 065
     Dates: start: 20130516
  20. GELCLAIR [Concomitant]
     Dosage: UNK
     Route: 065
     Dates: start: 20130719
  21. LOPERAMIDE [Concomitant]
     Active Substance: LOPERAMIDE
     Indication: Product used for unknown indication
     Dosage: UNK
     Route: 065
     Dates: start: 20130523, end: 20130526
  22. LOPERAMIDE [Concomitant]
     Active Substance: LOPERAMIDE
     Dosage: 2 MG, UNK
     Route: 065
     Dates: start: 20130729
  23. LYRICA [Concomitant]
     Active Substance: PREGABALIN
     Indication: Product used for unknown indication
     Dosage: 600 MILLIGRAM DAILY;
     Route: 065
     Dates: start: 201304
  24. METOCLOPRAMIDE [Concomitant]
     Active Substance: METOCLOPRAMIDE
     Indication: Premedication
     Dosage: 20 MG, UNK
     Route: 065
     Dates: start: 20130516
  25. MORPHINE SULFATE [Concomitant]
     Active Substance: MORPHINE SULFATE
     Indication: Product used for unknown indication
     Dosage: 320 MILLIGRAM DAILY;
     Route: 065
     Dates: start: 201304
  26. ACETAMINOPHEN [Concomitant]
     Active Substance: ACETAMINOPHEN
     Indication: Product used for unknown indication
     Dosage: 16 GRAM DAILY;
     Route: 065
     Dates: start: 201303
  27. PERTUZUMAB [Concomitant]
     Active Substance: PERTUZUMAB
     Indication: Breast cancer
     Dosage: 2 MG
     Route: 065
     Dates: start: 20130729
  28. PERTUZUMAB [Concomitant]
     Active Substance: PERTUZUMAB
     Dosage: 420 MG, Q3W
     Route: 042
     Dates: start: 20130711
  29. PERTUZUMAB [Concomitant]
     Active Substance: PERTUZUMAB
     Dosage: ON 06/JUN/2013,  SHE RECEIVED THE DOSE OF PERTUZUMAB PRIOR TO THE EVENT.ON 27/JUN/2013, THE THERAPY,
     Route: 042
     Dates: start: 20130516
  30. PERTUZUMAB [Concomitant]
     Active Substance: PERTUZUMAB
     Dosage: LAST DOSE PRIOR TO SAE: 16/MAY/2013, 840 MG
     Route: 042
     Dates: start: 20130516
  31. PERTUZUMAB [Concomitant]
     Active Substance: PERTUZUMAB
     Dosage: UNK
     Route: 065
     Dates: start: 20130606
  32. RANITIDINE [Concomitant]
     Active Substance: RANITIDINE
     Indication: Product used for unknown indication
     Dosage: 50 MG
     Route: 065
     Dates: start: 20130523
  33. MORPHINE [Concomitant]
     Active Substance: MORPHINE
     Indication: Product used for unknown indication
     Dosage: 90 MILLIGRAM DAILY;
     Route: 065
     Dates: start: 201304
  34. THYROXINE [Concomitant]
     Active Substance: LEVOTHYROXINE
     Indication: Product used for unknown indication
     Dosage: 100 MILLIGRAM DAILY;
     Route: 065
     Dates: start: 200110, end: 20130621

REACTIONS (2)
  - Infusion related reaction [Recovered/Resolved]
  - Cellulitis [Recovered/Resolved]

NARRATIVE: CASE EVENT DATE: 20130516
